FAERS Safety Report 9727470 (Version 4)
Quarter: 2014Q2

REPORT INFORMATION
  Report Type: Spontaneous
  Country: IT (occurrence: None)
  Receive Date: 20131127
  Receipt Date: 20140430
  Transmission Date: 20141212
  Serious: Yes (Other)
  Sender: FDA-Public Use
  Company Number: AUR-APL-2013-09887

PATIENT
  Age: 46 Year
  Sex: Male

DRUGS (1)
  1. RAMIPRIL [Suspect]
     Indication: HYPERTENSION
     Route: 048
     Dates: start: 20131018, end: 20131023

REACTIONS (7)
  - Agitation [None]
  - Blood pressure increased [None]
  - Feeling hot [None]
  - Presyncope [None]
  - Malaise [None]
  - Iatrogenic injury [None]
  - Drug ineffective [None]
